FAERS Safety Report 8152718-5 (Version None)
Quarter: 2012Q1

REPORT INFORMATION
  Report Type: 
  Country: None (occurrence: None)
  Receive Date: 20120103
  Receipt Date: 20111006
  Transmission Date: 20120608
  Serious: No
  Sender: FDA-Public Use
  Company Number: AE-2011-002100

PATIENT
  Age: 58 Year
  Sex: Female

DRUGS (4)
  1. PEGINTERFERON (PEGINTERFERON ALFA-2A) [Concomitant]
  2. RIBAPAK (RIBAVIRIN) [Concomitant]
  3. INCIVEK [Suspect]
     Dosage: (2 TABS),ORAL
     Route: 048
     Dates: start: 20110910
  4. INSULIN [Concomitant]

REACTIONS (2)
  - NAUSEA [None]
  - VOMITING [None]
